FAERS Safety Report 6354441-6 (Version None)
Quarter: 2009Q3

REPORT INFORMATION
  Report Type: 
  Country: None (occurrence: None)
  Receive Date: 20090914
  Receipt Date: 20090902
  Transmission Date: 20100115
  Serious: Yes (Death)
  Sender: FDA-Public Use
  Company Number: US-BIOGENIDEC-2009BI028950

PATIENT
  Age: 9 Year
  Sex: Female

DRUGS (3)
  1. AVONEX [Suspect]
     Indication: DRUG USE FOR UNKNOWN INDICATION
  2. ASCORBIC ACID [Concomitant]
  3. VITAMIN E [Concomitant]

REACTIONS (1)
  - CARDIO-RESPIRATORY ARREST [None]
